FAERS Safety Report 7676170-9 (Version None)
Quarter: 2011Q3

REPORT INFORMATION
  Report Type: 
  Country: None (occurrence: None)
  Receive Date: 20110805
  Receipt Date: 20110722
  Transmission Date: 20111222
  Serious: Yes (Hospitalization)
  Sender: FDA-Public Use
  Company Number: 2011ST000186

PATIENT
  Age: 11 Year
  Sex: Male
  Weight: 34.927 kg

DRUGS (14)
  1. MONTELUKAST SODIUM [Concomitant]
  2. LANSOPRAZOLE [Concomitant]
  3. CLONAZEPAM [Concomitant]
  4. TIZANIDINE HCL [Concomitant]
  5. FOLIC ACID [Concomitant]
  6. CELECOXIB [Concomitant]
  7. AZITHROMYCIN [Suspect]
     Indication: ANTIINFLAMMATORY THERAPY
     Dosage: 200 MG; QOD; PO
     Route: 048
  8. BUDESONIDE [Concomitant]
  9. LEVALBUTEROL HCL [Concomitant]
  10. ONDANSETRON [Concomitant]
  11. SENNA SYRUP [Concomitant]
  12. CARNITOR [Suspect]
     Indication: PRODUCT USED FOR UNKNOWN INDICATION
     Dosage: 650 MG; BID; PO
     Route: 048
  13. VALPROIC ACID [Suspect]
     Indication: CONVULSION
     Dosage: 250 MG; PO
     Route: 048
  14. HYDROCORTISONE [Concomitant]

REACTIONS (6)
  - PANCREATITIS [None]
  - INTERNATIONAL NORMALISED RATIO INCREASED [None]
  - OXYGEN SATURATION DECREASED [None]
  - CHOLELITHIASIS [None]
  - RESTLESSNESS [None]
  - ACTIVATED PARTIAL THROMBOPLASTIN TIME PROLONGED [None]
